FAERS Safety Report 9684497 (Version 2)
Quarter: 2013Q4

REPORT INFORMATION
  Report Type: Report from Study
  Country: US (occurrence: US)
  Receive Date: 20131112
  Receipt Date: 20131112
  Transmission Date: 20140711
  Serious: Yes (Hospitalization)
  Sender: FDA-Public Use
  Company Number: US-ASTRAZENECA-2013SE72174

PATIENT
  Age: 12481 Day
  Sex: Male
  Weight: 83.9 kg

DRUGS (6)
  1. CARBOPLATIN [Suspect]
     Indication: ANAPLASTIC ASTROCYTOMA
     Dosage: ONCE EVERY FOR WEEK CYCLE
     Route: 042
  2. ZD6474 [Suspect]
     Indication: ANAPLASTIC ASTROCYTOMA
     Route: 048
     Dates: start: 20130621, end: 20130715
  3. KEPPRA [Concomitant]
  4. PROVIGIL [Concomitant]
  5. PANTOPRAZOL [Concomitant]
  6. LISINOPRIL [Concomitant]

REACTIONS (3)
  - Haemorrhage intracranial [Recovered/Resolved]
  - Ataxia [Unknown]
  - Headache [Unknown]
